FAERS Safety Report 18787629 (Version 2)
Quarter: 2022Q1

REPORT INFORMATION
  Report Type: Spontaneous
  Country: US (occurrence: None)
  Receive Date: 20210125
  Receipt Date: 20220110
  Transmission Date: 20220423
  Serious: No
  Sender: FDA-Public Use
  Company Number: US-ROCHE-2645982

PATIENT
  Sex: Female
  Weight: 42.222 kg

DRUGS (3)
  1. RITUXAN HYCELA [Suspect]
     Active Substance: HYALURONIDASE (HUMAN RECOMBINANT)\RITUXIMAB
     Indication: Follicular lymphoma
     Route: 058
     Dates: start: 202001
  2. RITUXAN [Suspect]
     Active Substance: RITUXIMAB
     Indication: Follicular lymphoma
     Route: 042
     Dates: start: 202001
  3. COVID-19 VACCINE [Concomitant]
     Dosage: RECEIVED 2 DOSES
     Dates: start: 202102, end: 202102

REACTIONS (3)
  - Dyspnoea [Recovered/Resolved]
  - Eosinophil count increased [Unknown]
  - Nausea [Unknown]
